FAERS Safety Report 19031492 (Version 1)
Quarter: 2021Q1

REPORT INFORMATION
  Report Type: Spontaneous
  Country: US (occurrence: US)
  Receive Date: 20210318
  Receipt Date: 20210318
  Transmission Date: 20210420
  Serious: Yes (Death)
  Sender: FDA-Public Use
  Company Number: None

PATIENT
  Age: 81 Year
  Sex: Male

DRUGS (1)
  1. REVLIMID [Suspect]
     Active Substance: LENALIDOMIDE
     Indication: CHRONIC LYMPHOCYTIC LEUKAEMIA
     Route: 048
     Dates: start: 20140924, end: 20160729

REACTIONS (6)
  - Cerebrovascular accident [None]
  - Mental status changes [None]
  - Hypophagia [None]
  - General physical health deterioration [None]
  - Haemorrhage intracranial [None]
  - Metastatic neoplasm [None]

NARRATIVE: CASE EVENT DATE: 20160729
